FAERS Safety Report 22018007 (Version 3)
Quarter: 2023Q1

REPORT INFORMATION
  Report Type: Report from Study
  Country: US (occurrence: US)
  Receive Date: 20230221
  Receipt Date: 20230328
  Transmission Date: 20230417
  Serious: Yes (Other)
  Sender: FDA-Public Use
  Company Number: US-PFIZER INC-PV202300030637

PATIENT
  Age: 76 Year
  Sex: Male

DRUGS (1)
  1. PAXLOVID [Suspect]
     Active Substance: NIRMATRELVIR\RITONAVIR
     Dosage: UNK

REACTIONS (8)
  - Pneumonia [Unknown]
  - Respiratory failure [Unknown]
  - Fall [Unknown]
  - Mental status changes [Unknown]
  - Lung opacity [Unknown]
  - Oxygen consumption [Unknown]
  - Therapeutic product effect incomplete [Unknown]
  - SARS-CoV-2 test positive [Unknown]

NARRATIVE: CASE EVENT DATE: 20230101
